FAERS Safety Report 7654355-5 (Version None)
Quarter: 2011Q3

REPORT INFORMATION
  Report Type: 
  Country: None (occurrence: None)
  Receive Date: 20110803
  Receipt Date: 20110728
  Transmission Date: 20111222
  Serious: Yes (Death, Other)
  Sender: FDA-Public Use
  Company Number: JP-PFIZER INC-2011171498

PATIENT
  Sex: Male

DRUGS (1)
  1. AZULFIDINE [Suspect]
     Dosage: 500 MG, 2X/DAY

REACTIONS (6)
  - ERYTHEMA [None]
  - DIARRHOEA [None]
  - MULTI-ORGAN FAILURE [None]
  - DRUG HYPERSENSITIVITY [None]
  - SKIN IRRITATION [None]
  - VOMITING [None]
